FAERS Safety Report 7385033-8 (Version None)
Quarter: 2011Q1

REPORT INFORMATION
  Report Type: 
  Country: None (occurrence: None)
  Receive Date: 20110330
  Receipt Date: 20110325
  Transmission Date: 20110831
  Serious: Yes (Other)
  Sender: FDA-Public Use
  Company Number: US-PFIZER INC-2011068288

PATIENT
  Sex: Male

DRUGS (7)
  1. LIPITOR [Suspect]
     Dosage: 40 MG, UNK
  2. LOVAZA [Concomitant]
     Dosage: UNK
  3. HYDROCHLOROTHIAZIDE [Concomitant]
  4. BENICAR [Concomitant]
     Dosage: UNK
  5. LIPITOR [Suspect]
     Dosage: 20 MG, UNK
  6. WARFARIN [Concomitant]
     Dosage: UNK
  7. PREVACID [Concomitant]
     Dosage: UNK

REACTIONS (4)
  - DEEP VEIN THROMBOSIS [None]
  - RASH [None]
  - LESION EXCISION [None]
  - BLOOD CREATININE INCREASED [None]
